FAERS Safety Report 6819918-5 (Version None)
Quarter: 2010Q3

REPORT INFORMATION
  Report Type: 
  Country: None (occurrence: None)
  Receive Date: 20100707
  Receipt Date: 20100625
  Transmission Date: 20110219
  Serious: Yes (Death, Life-Threatening, Hospitalization)
  Sender: FDA-Public Use
  Company Number: CA-CELGENEUS-028-50794-10011296

PATIENT
  Age: 71 Year
  Sex: Male

DRUGS (1)
  1. VIDAZA [Suspect]
     Route: 065
     Dates: start: 20091214, end: 20091221

REACTIONS (5)
  - ACUTE MYELOID LEUKAEMIA [None]
  - MYELODYSPLASTIC SYNDROME TRANSFORMATION [None]
  - NEUTROPENIA [None]
  - PNEUMONIA [None]
  - SEPSIS [None]
